FAERS Safety Report 15706544 (Version 1)
Quarter: 2018Q4

REPORT INFORMATION
  Report Type: Spontaneous
  Country: CH (occurrence: CH)
  Receive Date: 20181210
  Receipt Date: 20181210
  Transmission Date: 20190205
  Serious: Yes (Death)
  Sender: FDA-Public Use
  Company Number: CH-SAKK-2018SA332823AA

PATIENT
  Age: 72 Year
  Sex: Female

DRUGS (25)
  1. ATORVASTATIN [Suspect]
     Active Substance: ATORVASTATIN
     Dosage: 10 MG
     Route: 048
  2. ATORVASTATIN [Suspect]
     Active Substance: ATORVASTATIN
     Dosage: 40 MG, QD
     Route: 048
     Dates: start: 20170811
  3. SERTRALINE [Suspect]
     Active Substance: SERTRALINE HYDROCHLORIDE
     Dosage: 50 MG, QD
     Route: 048
  4. TORASEMIDE [Concomitant]
     Active Substance: TORSEMIDE
     Dosage: 2.5 MG
     Dates: start: 20170814
  5. MYCOSTATINE [Concomitant]
     Active Substance: NYSTATIN
     Dosage: UNK
     Dates: start: 20170817, end: 20170829
  6. NEXIUM [ESOMEPRAZOLE MAGNESIUM] [Concomitant]
     Dosage: UNK
  7. GLUCOPHAGE [Concomitant]
     Active Substance: METFORMIN HYDROCHLORIDE
  8. BELOC ZOK [Concomitant]
     Active Substance: METOPROLOL SUCCINATE
     Dosage: UNK
  9. PASPERTIN [METOCLOPRAMIDE HYDROCHLORIDE] [Concomitant]
     Active Substance: METOCLOPRAMIDE HYDROCHLORIDE
     Dosage: UNK
     Dates: start: 20170827, end: 20170827
  10. XANAX [Concomitant]
     Active Substance: ALPRAZOLAM
     Dosage: UNK
  11. DAFALGAN [Concomitant]
     Active Substance: ACETAMINOPHEN
     Dosage: UNK
  12. CLEXANE [Suspect]
     Active Substance: ENOXAPARIN SODIUM
     Dosage: 120 MG, Q12H
     Route: 058
     Dates: start: 20170809, end: 20170816
  13. CEFUROXIME AXETIL. [Suspect]
     Active Substance: CEFUROXIME AXETIL
     Dosage: 2250 MG, QD
     Route: 048
     Dates: start: 20170805, end: 20170812
  14. BIOFLORIN [ENTEROCOCCUS FAECALIS] [Concomitant]
     Dosage: UNK
     Dates: start: 20170823, end: 20170828
  15. ELIQUIS [Concomitant]
     Active Substance: APIXABAN
     Dosage: UNK
  16. SINTROM [Concomitant]
     Active Substance: ACENOCOUMAROL
     Dosage: UNK
     Dates: start: 20170811
  17. FLAGYL [Concomitant]
     Active Substance: METRONIDAZOLE\METRONIDAZOLE HYDROCHLORIDE
     Dosage: UNK
     Dates: start: 20170825, end: 20170901
  18. CALCIMAGON D3 [Concomitant]
     Active Substance: CALCIUM\CHOLECALCIFEROL
     Dosage: UNK
  19. SERTRALINE [Suspect]
     Active Substance: SERTRALINE HYDROCHLORIDE
     Dosage: 25 MG, QD
     Route: 048
  20. LISINOPRIL. [Suspect]
     Active Substance: LISINOPRIL
     Dosage: 2.5 MG, QD
     Route: 048
     Dates: start: 20170810
  21. DIGOXINE [Concomitant]
     Active Substance: DIGOXIN
     Dosage: 0.5 MG
     Dates: start: 20170805, end: 20170805
  22. MG5 ORALEFF [Concomitant]
  23. MOTILIUM [DOMPERIDONE] [Concomitant]
     Dosage: UNK
     Dates: start: 20170828, end: 20170829
  24. JANUMET [Concomitant]
     Active Substance: METFORMIN HYDROCHLORIDE\SITAGLIPTIN PHOSPHATE
     Dosage: UNK
  25. PURSANA [Concomitant]
     Active Substance: FIG FRUIT OIL\SORBITOL
     Dosage: UNK

REACTIONS (2)
  - Mixed liver injury [Fatal]
  - Cholestatic liver injury [Fatal]

NARRATIVE: CASE EVENT DATE: 20170806
